FAERS Safety Report 6645749-5 (Version None)
Quarter: 2010Q1

REPORT INFORMATION
  Report Type: 
  Country: None (occurrence: None)
  Receive Date: 20100318
  Receipt Date: 20100318
  Transmission Date: 20100710
  Serious: Yes (Hospitalization)
  Sender: FDA-Public Use
  Company Number: None

PATIENT
  Sex: Male
  Weight: 64.3 kg

DRUGS (6)
  1. CYTARABINE [Suspect]
     Dosage: 70 MG
  2. DAUNORUBICIN HCL [Suspect]
     Dosage: 180 MG
  3. METHOTREXATE [Suspect]
     Dosage: 30 MG
  4. METHYLPREDNISOLONE [Suspect]
     Dosage: 2940 MG
  5. PEG-L ASPARAGINASE (K-H) [Suspect]
     Dosage: 4500 IU
  6. VINCRISTINE SULFATE [Suspect]
     Dosage: 8 MG

REACTIONS (6)
  - BRONCHOSCOPY ABNORMAL [None]
  - COUGH [None]
  - FUNGAL INFECTION [None]
  - LUNG INFILTRATION [None]
  - NEUTROPENIA [None]
  - PYREXIA [None]
